FAERS Safety Report 5146888-0 (Version None)
Quarter: 2006Q4

REPORT INFORMATION
  Report Type: 
  Country: None (occurrence: None)
  Receive Date: 20061109
  Receipt Date: 20061102
  Transmission Date: 20070319
  Serious: Yes (Life-Threatening, Other)
  Sender: FDA-Public Use
  Company Number: GB-GLAXOSMITHKLINE-B0445747A

PATIENT
  Age: 58 Year
  Sex: Male
  Weight: 75 kg

DRUGS (7)
  1. AUGMENTIN '125' [Suspect]
     Indication: DRUG USE FOR UNKNOWN INDICATION
     Dosage: 1.2G PER DAY
     Route: 042
     Dates: start: 20060824, end: 20060824
  2. FENTANYL CITRATE [Concomitant]
     Indication: INDUCTION OF ANAESTHESIA
     Route: 065
     Dates: start: 20060824, end: 20060824
  3. KETOROLAC TROMETHAMINE [Concomitant]
     Indication: INDUCTION OF ANAESTHESIA
     Route: 065
     Dates: start: 20060824, end: 20060824
  4. MORPHINE SUL INJ [Concomitant]
     Route: 065
     Dates: start: 20060824, end: 20060824
  5. PROPOFOL [Concomitant]
     Indication: INDUCTION OF ANAESTHESIA
     Route: 065
     Dates: start: 20060824, end: 20060824
  6. ROCURONIUM [Concomitant]
     Indication: INDUCTION OF ANAESTHESIA
     Route: 065
     Dates: start: 20060824, end: 20060824
  7. SEVOFLURANE [Concomitant]
     Indication: INDUCTION OF ANAESTHESIA
     Route: 065
     Dates: start: 20060824, end: 20060824

REACTIONS (4)
  - ANAPHYLACTIC REACTION [None]
  - HYPOTENSION [None]
  - OXYGEN SATURATION DECREASED [None]
  - TACHYCARDIA [None]
